FAERS Safety Report 6850530-8 (Version None)
Quarter: 2010Q3

REPORT INFORMATION
  Report Type: 
  Country: None (occurrence: None)
  Receive Date: 20100716
  Receipt Date: 20071012
  Transmission Date: 20110219
  Serious: No
  Sender: FDA-Public Use
  Company Number: US-PFIZER INC-2007087928

PATIENT
  Sex: Female

DRUGS (3)
  1. CHANTIX [Suspect]
     Indication: SMOKING CESSATION THERAPY
     Dates: start: 20071001
  2. MOTRIN [Concomitant]
     Indication: PAIN
     Dates: start: 20070101
  3. VICODIN [Concomitant]
     Indication: PAIN
     Dates: start: 20070101

REACTIONS (2)
  - DIARRHOEA [None]
  - HAEMORRHOIDS [None]
